FAERS Safety Report 5919764-0 (Version None)
Quarter: 2008Q4

REPORT INFORMATION
  Report Type: 
  Country: None (occurrence: None)
  Receive Date: 20081015
  Receipt Date: 20081006
  Transmission Date: 20090506
  Serious: Yes (Other)
  Sender: FDA-Public Use
  Company Number: ES-PFIZER INC-2008038724

PATIENT
  Sex: Male
  Weight: 80 kg

DRUGS (8)
  1. LINEZOLID [Suspect]
     Indication: STAPHYLOCOCCAL INFECTION
     Route: 042
     Dates: start: 20080125, end: 20080228
  2. LINEZOLID [Suspect]
     Indication: BACTERAEMIA
  3. OTHER ANTIHYPERTENSIVES [Concomitant]
  4. PHENYTOIN [Concomitant]
     Route: 042
     Dates: start: 20080106
  5. CAPTOPRIL [Concomitant]
     Dates: start: 20080130, end: 20080228
  6. GEMCITABINE [Concomitant]
     Route: 042
     Dates: start: 20080201, end: 20080207
  7. FLUCONAZOLE [Concomitant]
     Route: 042
     Dates: start: 20080208, end: 20080223
  8. FUROSEMIDE [Concomitant]
     Route: 042
     Dates: start: 20080219, end: 20080221

REACTIONS (2)
  - ANAEMIA [None]
  - RENAL FAILURE [None]
